FAERS Safety Report 8388405-8 (Version None)
Quarter: 2012Q2

REPORT INFORMATION
  Report Type: 
  Country: None (occurrence: None)
  Receive Date: 20120525
  Receipt Date: 20120514
  Transmission Date: 20120825
  Serious: Yes (Hospitalization)
  Sender: FDA-Public Use
  Company Number: FR-ELI_LILLY_AND_COMPANY-FR201205004529

PATIENT
  Sex: Female

DRUGS (12)
  1. LASIX [Concomitant]
     Dosage: 125 MG, QD
     Route: 048
     Dates: start: 20120203, end: 20120215
  2. MORPHINE SULFATE [Concomitant]
     Dosage: 20 MG, UNK
     Route: 048
     Dates: end: 20120214
  3. ACETAMINOPHEN [Concomitant]
     Dosage: 3 G, QD
     Route: 048
  4. AUGMENTIN '125' [Concomitant]
     Dosage: 1 G, QD
     Route: 048
     Dates: start: 20120216, end: 20120302
  5. DURAGESIC-100 [Concomitant]
     Dosage: 75 UG/HR, UNK
     Route: 062
     Dates: start: 20120214
  6. NEXIUM [Concomitant]
     Dosage: 20 MG, QD
     Route: 048
  7. LYRICA [Concomitant]
     Indication: PAIN
     Dosage: 50 MG, BID
  8. CYMBALTA [Suspect]
     Indication: DEPRESSION
     Dosage: 60 MG, QD
     Route: 048
  9. DURAGESIC-100 [Concomitant]
     Dosage: 150 UG/HR, UNK
     Route: 062
     Dates: end: 20120214
  10. LEVOFLOXACIN [Concomitant]
     Dosage: 500 MG, QD
     Route: 048
     Dates: end: 20120209
  11. PENTOXIFYLLINE [Concomitant]
     Dosage: 5 MG, QD
  12. DICODIN [Concomitant]
     Indication: PAIN
     Dosage: 60 MG, UNK
     Route: 048
     Dates: start: 20120210, end: 20120217

REACTIONS (3)
  - DEPRESSED LEVEL OF CONSCIOUSNESS [None]
  - COMA [None]
  - DISORIENTATION [None]
